FAERS Safety Report 18214184 (Version 1)
Quarter: 2020Q3

REPORT INFORMATION
  Report Type: Spontaneous
  Country: JP (occurrence: JP)
  Receive Date: 20200831
  Receipt Date: 20200831
  Transmission Date: 20201103
  Serious: Yes (Death, Life-Threatening, Hospitalization, Other)
  Sender: FDA-Public Use
  Company Number: JP-ALLERGAN-2032573US

PATIENT
  Sex: Female
  Weight: 53.5 kg

DRUGS (18)
  1. FOLIC ACID. [Concomitant]
     Active Substance: FOLIC ACID
     Dosage: UNK
     Dates: start: 20110729, end: 20110822
  2. LOXONIN [Suspect]
     Active Substance: LOXOPROFEN SODIUM
     Indication: OSTEOARTHRITIS
     Dosage: 60 MG, TID
     Route: 048
     Dates: start: 20110502, end: 20110822
  3. CHLORPROMAZINE HYDROCHLORIDE. [Concomitant]
     Active Substance: CHLORPROMAZINE HYDROCHLORIDE
     Dosage: UNK
     Route: 065
     Dates: start: 20110608, end: 20110822
  4. VALPROATE SODIUM. [Concomitant]
     Active Substance: VALPROATE SODIUM
     Dosage: UNK
     Route: 065
     Dates: start: 20071117, end: 20110822
  5. MAGNESIUM OXIDE. [Concomitant]
     Active Substance: MAGNESIUM OXIDE
     Dosage: UNK
     Route: 065
     Dates: start: 20110327, end: 20110822
  6. FLUNITRAZEPAM [Concomitant]
     Active Substance: FLUNITRAZEPAM
     Dosage: UNK
     Dates: start: 20101215, end: 20110822
  7. BROVARIN [Concomitant]
     Active Substance: BROMISOVAL
     Dosage: UNK
     Dates: start: 20110803, end: 20110813
  8. LYRICA [Suspect]
     Active Substance: PREGABALIN
     Indication: OSTEOARTHRITIS
     Dosage: 75 MG, BID
     Route: 048
     Dates: start: 20110620, end: 20110822
  9. ISOMYTAL [Concomitant]
     Active Substance: AMOBARBITAL SODIUM
     Dosage: UNK
     Dates: start: 20110803, end: 20110813
  10. LYRICA [Suspect]
     Active Substance: PREGABALIN
     Indication: BACK PAIN
  11. LITHIUM CARBONATE. [Concomitant]
     Active Substance: LITHIUM CARBONATE
     Dosage: UNK
     Route: 065
     Dates: start: 20101215, end: 20110822
  12. MUCOSTA [Concomitant]
     Active Substance: REBAMIPIDE
     Dosage: UNK
     Route: 065
     Dates: start: 20110502, end: 20110822
  13. ABILIFY [Concomitant]
     Active Substance: ARIPIPRAZOLE
     Dosage: UNK
     Route: 065
     Dates: start: 20110722, end: 20110822
  14. VAGOSTIGMIN [Concomitant]
     Dosage: UNK
     Dates: start: 20110527, end: 20110822
  15. MOHRUS [Concomitant]
     Active Substance: KETOPROFEN
     Dosage: UNK
     Dates: start: 20110716
  16. ASENAPINE MALEATE ? BP [Suspect]
     Active Substance: ASENAPINE MALEATE
     Indication: SCHIZOPHRENIA
     Dosage: 5 MG, BID
     Route: 060
     Dates: start: 20110730, end: 20110822
  17. U PAN [Concomitant]
     Active Substance: LORAZEPAM
     Dosage: UNK
     Route: 065
     Dates: start: 20110716, end: 20110816
  18. RISPERDAL [Concomitant]
     Active Substance: RISPERIDONE
     Dosage: UNK
     Dates: start: 20110816, end: 20110817

REACTIONS (9)
  - Upper gastrointestinal haemorrhage [Fatal]
  - Peritonitis [Fatal]
  - Ileus [Fatal]
  - Abdominal abscess [Fatal]
  - Pneumonia [Fatal]
  - Somnolence [Fatal]
  - Asthenia [Fatal]
  - Renal impairment [Fatal]
  - Dizziness [Fatal]

NARRATIVE: CASE EVENT DATE: 20110821
